FAERS Safety Report 10011545 (Version 1)
Quarter: 2014Q1

REPORT INFORMATION
  Report Type: Spontaneous
  Country: ES (occurrence: ES)
  Receive Date: 20140314
  Receipt Date: 20140314
  Transmission Date: 20141002
  Serious: Yes (Hospitalization)
  Sender: FDA-Public Use
  Company Number: ES-ASTELLAS-2014EU002078

PATIENT
  Age: 63 Year
  Sex: Male
  Weight: 70 kg

DRUGS (3)
  1. MYCAMINE [Suspect]
     Dosage: 100 MG, UNKNOWN/D
     Route: 042
     Dates: start: 20140221, end: 20140305
  2. AZACTAM [Concomitant]
     Indication: ANTIBIOTIC THERAPY
     Dosage: 2 G, TID
     Route: 042
     Dates: start: 20140227, end: 20140306
  3. TAVANIC [Concomitant]
     Indication: ANTIBIOTIC THERAPY
     Dosage: 500 MG, BID
     Route: 042
     Dates: start: 20140219, end: 20140306

REACTIONS (1)
  - Endocarditis [Unknown]
